FAERS Safety Report 13500610 (Version 1)
Quarter: 2017Q2

REPORT INFORMATION
  Report Type: Spontaneous
  Country: US (occurrence: US)
  Receive Date: 20170501
  Receipt Date: 20170501
  Transmission Date: 20170830
  Serious: No
  Sender: FDA-Public Use
  Company Number: US-PFIZER INC-2017184187

PATIENT
  Age: 8 Year

DRUGS (1)
  1. QUILLIVANT XR [Suspect]
     Active Substance: METHYLPHENIDATE HYDROCHLORIDE
     Dosage: UNK

REACTIONS (5)
  - Change in sustained attention [Unknown]
  - Poor quality drug administered [Unknown]
  - Incorrect dose administered [Unknown]
  - Product preparation error [Unknown]
  - Abnormal behaviour [Unknown]
